FAERS Safety Report 4788069-6 (Version None)
Quarter: 2005Q4

REPORT INFORMATION
  Report Type: 
  Country: None (occurrence: None)
  Receive Date: 20051004
  Receipt Date: 20051004
  Transmission Date: 20060501
  Serious: Yes (Death, Hospitalization, Other)
  Sender: FDA-Public Use
  Company Number: None

PATIENT
  Age: 3 Month
  Sex: Male

DRUGS (4)
  1. A AND D ORIGINAL (LANOLIN / PETROLATUM) OINTMENT [Suspect]
     Indication: RASH
     Dosage: TOPICAL
     Route: 061
  2. A AND D ORIGINAL (LANOLIN / PETROLATUM) OINTMENT [Suspect]
     Indication: SKIN CHAPPED
     Dosage: TOPICAL
     Route: 061
  3. OXYGEN NO DOSE FORM [Suspect]
     Indication: SKIN CHAPPED
     Dosage: INHALATION
     Route: 055
  4. MINERAL OIL OIL [Suspect]
     Indication: RASH
     Dosage: TOPICAL
     Route: 061

REACTIONS (32)
  - ABDOMINAL MASS [None]
  - BASE EXCESS INCREASED [None]
  - BLOOD BICARBONATE DECREASED [None]
  - BLOOD CHLORIDE INCREASED [None]
  - BLOOD GLUCOSE DECREASED [None]
  - BLOOD PH DECREASED [None]
  - BLOOD POTASSIUM INCREASED [None]
  - BLOOD SODIUM DECREASED [None]
  - BURNS SECOND DEGREE [None]
  - BURNS THIRD DEGREE [None]
  - CHEST X-RAY ABNORMAL [None]
  - CSF CELL COUNT INCREASED [None]
  - CSF GLUCOSE DECREASED [None]
  - CSF PROTEIN INCREASED [None]
  - DYSPNOEA [None]
  - EYE SWELLING [None]
  - GLASGOW COMA SCALE ABNORMAL [None]
  - HAEMATOCRIT DECREASED [None]
  - HAEMOGLOBIN DECREASED [None]
  - IATROGENIC INJURY [None]
  - LOSS OF CONSCIOUSNESS [None]
  - LYMPHOCYTE COUNT DECREASED [None]
  - NEUROLOGICAL EXAMINATION ABNORMAL [None]
  - NEUTROPHIL PERCENTAGE DECREASED [None]
  - PCO2 INCREASED [None]
  - PLATELET COUNT INCREASED [None]
  - PULMONARY OEDEMA [None]
  - PUPIL FIXED [None]
  - RESPIRATORY ARREST [None]
  - SKIN EXFOLIATION [None]
  - THERMAL BURN [None]
  - WHITE BLOOD CELL COUNT INCREASED [None]
